FAERS Safety Report 15757021 (Version 1)
Quarter: 2018Q4

REPORT INFORMATION
  Report Type: Spontaneous
  Country: US (occurrence: US)
  Receive Date: 20181224
  Receipt Date: 20181224
  Transmission Date: 20190205
  Serious: Yes (Other)
  Sender: FDA-Public Use
  Company Number: None

PATIENT
  Age: 60 Year
  Sex: Female
  Weight: 183.6 kg

DRUGS (1)
  1. LOSARTAN HCTZ TABS 100/25 MG [Suspect]
     Active Substance: HYDROCHLOROTHIAZIDE\LOSARTAN
     Indication: BLOOD PRESSURE MANAGEMENT
     Route: 048

REACTIONS (3)
  - Rash pruritic [None]
  - Urticaria [None]
  - Swelling [None]

NARRATIVE: CASE EVENT DATE: 20181214
